FAERS Safety Report 4735036-4 (Version None)
Quarter: 2005Q3

REPORT INFORMATION
  Report Type: 
  Country: None (occurrence: None)
  Receive Date: 20050804
  Receipt Date: 20050722
  Transmission Date: 20060218
  Serious: Yes (Hospitalization)
  Sender: FDA-Public Use
  Company Number: JP-MERCK-0507USA03941

PATIENT
  Age: 85 Year
  Sex: Female

DRUGS (4)
  1. FOSAMAX [Suspect]
     Indication: OSTEOPOROSIS
     Route: 048
     Dates: start: 20040727, end: 20050701
  2. LOXONIN [Suspect]
     Indication: ANALGESIC THERAPY
     Route: 048
     Dates: start: 20040819, end: 20050701
  3. MOBIC [Suspect]
     Indication: ANALGESIC THERAPY
     Route: 048
     Dates: start: 20040401
  4. MUCOSTA [Concomitant]
     Route: 048
     Dates: end: 20050701

REACTIONS (1)
  - DUODENAL PERFORATION [None]
